FAERS Safety Report 9296833 (Version 2)
Quarter: 2013Q2

REPORT INFORMATION
  Report Type: Spontaneous
  Country: US (occurrence: US)
  Receive Date: 20130517
  Receipt Date: 20130614
  Transmission Date: 20140414
  Serious: Yes (Hospitalization)
  Sender: FDA-Public Use
  Company Number: US-B.I. PHARMACEUTICALS,INC./RIDGEFIELD-2013-BI-13377BP

PATIENT
  Age: 77 Year
  Sex: Male
  Weight: 95.71 kg

DRUGS (16)
  1. PRADAXA [Suspect]
     Dosage: 300 MG
     Route: 048
     Dates: start: 20101108, end: 20120504
  2. OXYGEN [Concomitant]
  3. ASPIRIN [Concomitant]
     Dosage: 81 MG
  4. ALBUTEROL [Concomitant]
     Dosage: 8 PUF
  5. AMLODIPINE [Concomitant]
     Dosage: 5 MG
  6. CARVEDILOL [Concomitant]
     Dosage: 6.25 MG
  7. LASIX [Concomitant]
     Dosage: 60 MG
  8. LISINOPRIL [Concomitant]
     Dosage: 40 MG
  9. ZOCOR [Concomitant]
     Dosage: 20 MG
  10. GLYBURIDE [Concomitant]
  11. HUMULIN-N [Concomitant]
  12. METFORMIN [Concomitant]
     Dosage: 500 MG
  13. FLUOXETINE [Concomitant]
     Dosage: 40 MG
  14. PACERONE [Concomitant]
     Dosage: 200 MG
  15. OMZERAX [Concomitant]
  16. TRADJENTA [Concomitant]
     Dosage: 2.5 MG

REACTIONS (4)
  - Anaemia [Unknown]
  - Gastrointestinal haemorrhage [Unknown]
  - Haematochezia [Unknown]
  - Epistaxis [Unknown]
